FAERS Safety Report 23442786 (Version 3)
Quarter: 2024Q1

REPORT INFORMATION
  Report Type: Spontaneous
  Country: US (occurrence: US)
  Receive Date: 20240125
  Receipt Date: 20240313
  Transmission Date: 20240410
  Serious: No
  Sender: FDA-Public Use
  Company Number: US-BEH-2024167698

PATIENT
  Age: 74 Year
  Sex: Male
  Weight: 96.2 kg

DRUGS (11)
  1. PRIVIGEN [Suspect]
     Active Substance: HUMAN IMMUNOGLOBULIN G
     Indication: Blood immunoglobulin G decreased
     Dosage: UNK UNK, QMT (EVERY 4 WEEKS)
     Route: 065
     Dates: start: 202310
  2. PRIVIGEN [Suspect]
     Active Substance: HUMAN IMMUNOGLOBULIN G
     Dosage: UNK
     Route: 065
     Dates: start: 202311
  3. PRIVIGEN [Suspect]
     Active Substance: HUMAN IMMUNOGLOBULIN G
     Dosage: UNK
     Route: 065
     Dates: start: 20240111
  4. PRIVIGEN [Suspect]
     Active Substance: HUMAN IMMUNOGLOBULIN G
     Dosage: UNK
     Route: 065
  5. PRIVIGEN [Suspect]
     Active Substance: HUMAN IMMUNOGLOBULIN G
     Dosage: UNK
     Route: 065
     Dates: start: 202402
  6. BENADRYL [Concomitant]
     Active Substance: DIPHENHYDRAMINE HYDROCHLORIDE
     Indication: Premedication
     Dosage: UNK
     Dates: start: 202310
  7. TYLENOL [Concomitant]
     Active Substance: ACETAMINOPHEN
     Indication: Premedication
     Dosage: UNK
     Dates: start: 202310
  8. PREDNISONE [Concomitant]
     Active Substance: PREDNISONE
     Dosage: 40 MILLIGRAM DURING THE INFUSION
     Dates: start: 202311
  9. PREDNISONE [Concomitant]
     Active Substance: PREDNISONE
     Dosage: 40 MILLIGRAM
     Dates: start: 202311
  10. PREDNISONE [Concomitant]
     Active Substance: PREDNISONE
     Dosage: UNK DURING THE INFUSION
     Dates: start: 20240111
  11. PREDNISONE [Concomitant]
     Active Substance: PREDNISONE
     Dosage: UNK THE DAY AFTER THE INFUSION
     Dates: start: 20240112

REACTIONS (23)
  - Headache [Recovered/Resolved]
  - Pain [Recovered/Resolved]
  - Headache [Recovered/Resolved]
  - Nausea [Recovered/Resolved]
  - Headache [Recovering/Resolving]
  - No adverse event [Unknown]
  - Inappropriate schedule of product administration [Unknown]
  - Headache [Unknown]
  - Neck pain [Unknown]
  - Pain [Unknown]
  - Cough [Unknown]
  - Feeling abnormal [Unknown]
  - Headache [Recovered/Resolved]
  - Arthralgia [Unknown]
  - Occipital neuralgia [Unknown]
  - Facial pain [Unknown]
  - Headache [Unknown]
  - Headache [Unknown]
  - Neck pain [Unknown]
  - Headache [Unknown]
  - Influenza like illness [Unknown]
  - Feeling abnormal [Unknown]
  - Migraine [Unknown]

NARRATIVE: CASE EVENT DATE: 20231001
